FAERS Safety Report 11375337 (Version 1)
Quarter: 2015Q3

REPORT INFORMATION
  Report Type: Spontaneous
  Country: US (occurrence: US)
  Receive Date: 20150813
  Receipt Date: 20150813
  Transmission Date: 20151125
  Serious: No
  Sender: FDA-Public Use
  Company Number: US-BAYER-2015-399439

PATIENT
  Age: 67 Year
  Sex: Female
  Weight: 63.49 kg

DRUGS (2)
  1. ALEVE PM [Suspect]
     Active Substance: DIPHENHYDRAMINE HYDROCHLORIDE\NAPROXEN SODIUM
     Indication: ARTHRALGIA
     Dosage: 1 DF, ONCE
     Route: 048
     Dates: start: 20150807, end: 20150807
  2. LISINOPRIL. [Concomitant]
     Active Substance: LISINOPRIL
     Dosage: UNK

REACTIONS (1)
  - Poor quality sleep [Recovered/Resolved]

NARRATIVE: CASE EVENT DATE: 20150807
